FAERS Safety Report 16040941 (Version 1)
Quarter: 2019Q1

REPORT INFORMATION
  Report Type: Spontaneous
  Country: US (occurrence: US)
  Receive Date: 20190306
  Receipt Date: 20190306
  Transmission Date: 20190418
  Serious: No
  Sender: FDA-Public Use
  Company Number: US-AKORN PHARMACEUTICALS-2018AKN01541

PATIENT
  Age: 64 Year
  Sex: Female
  Weight: 56.69 kg

DRUGS (4)
  1. FLUOXETINE [Concomitant]
     Active Substance: FLUOXETINE HYDROCHLORIDE
  2. LEVOTHYROXINE. [Concomitant]
     Active Substance: LEVOTHYROXINE
  3. MYORISAN [Suspect]
     Active Substance: ISOTRETINOIN
     Indication: GRANULOMA ANNULARE
     Dosage: 30 MG, 1X/DAY
     Route: 048
     Dates: start: 20180813, end: 20180906
  4. ONDANSETRON [Concomitant]
     Active Substance: ONDANSETRON

REACTIONS (3)
  - Product use in unapproved indication [Recovered/Resolved]
  - Granuloma annulare [Recovering/Resolving]
  - Off label use [Recovered/Resolved]

NARRATIVE: CASE EVENT DATE: 2018
